FAERS Safety Report 9613931 (Version 2)
Quarter: 2013Q4

REPORT INFORMATION
  Report Type: Spontaneous
  Country: US (occurrence: US)
  Receive Date: 20131011
  Receipt Date: 20131203
  Transmission Date: 20140711
  Serious: Yes (Other)
  Sender: FDA-Public Use
  Company Number: US-PFIZER INC-2013287909

PATIENT
  Age: 23 Year
  Sex: Female
  Weight: 77.1 kg

DRUGS (1)
  1. ELELYSO [Suspect]
     Indication: GAUCHER^S DISEASE
     Dosage: 3400 IU, EVERY 2 WEEKS
     Route: 042
     Dates: start: 20130826

REACTIONS (2)
  - Bronchitis [Recovered/Resolved]
  - Pyrexia [Recovered/Resolved]
